FAERS Safety Report 9621125 (Version 1)
Quarter: 2013Q4

REPORT INFORMATION
  Report Type: Report from Study
  Country: FR (occurrence: FR)
  Receive Date: 20131015
  Receipt Date: 20131015
  Transmission Date: 20140711
  Serious: Yes (Other)
  Sender: FDA-Public Use
  Company Number: FR-PFIZER INC-2013291532

PATIENT
  Age: 85 Year
  Sex: Female

DRUGS (1)
  1. ESTRACYT [Suspect]
     Dosage: 560 MG, 1X/DAY
     Route: 048
     Dates: start: 20111012, end: 20111109

REACTIONS (5)
  - Musculoskeletal pain [Recovered/Resolved]
  - Insomnia [Recovered/Resolved]
  - Oedema peripheral [Recovered/Resolved]
  - Oedema peripheral [Recovered/Resolved]
  - Asthenia [Recovered/Resolved]
